FAERS Safety Report 15279030 (Version 1)
Quarter: 2018Q3

REPORT INFORMATION
  Report Type: Spontaneous
  Country: DE (occurrence: DE)
  Receive Date: 20180815
  Receipt Date: 20180815
  Transmission Date: 20181010
  Serious: Yes (Other)
  Sender: FDA-Public Use
  Company Number: DE-TEVA-2017-DE-834974

PATIENT
  Age: 21 Year
  Sex: Male

DRUGS (10)
  1. PROMETHAZINE [Concomitant]
     Active Substance: PROMETHAZINE\PROMETHAZINE HYDROCHLORIDE
     Indication: PRODUCT USED FOR UNKNOWN INDICATION
     Dosage: DOSAGE FORM: UNSPECIFIED
     Route: 048
     Dates: start: 20170109, end: 20170110
  2. CLEXANE [Concomitant]
     Active Substance: ENOXAPARIN SODIUM
     Indication: PRODUCT USED FOR UNKNOWN INDICATION
     Dosage: .4 MILLIGRAM DAILY;
     Route: 058
     Dates: start: 20170110, end: 20170110
  3. HALOPERIDOL. [Suspect]
     Active Substance: HALOPERIDOL
     Indication: PSYCHOMOTOR HYPERACTIVITY
     Dosage: 5 MG, ONCE
     Route: 048
     Dates: start: 20170111, end: 20170111
  4. PROTHIPENDYL [Concomitant]
     Active Substance: PROTHIPENDYL
     Indication: PRODUCT USED FOR UNKNOWN INDICATION
     Dosage: DOSAGE FORM: UNSPECIFIED
     Route: 048
     Dates: start: 20161227, end: 20170110
  5. HALOPERIDOL. [Interacting]
     Active Substance: HALOPERIDOL
     Indication: TENSION
  6. ZUCLOPENTHIXOL ACETATE [Interacting]
     Active Substance: ZUCLOPENTHIXOL ACETATE
     Indication: PSYCHOMOTOR HYPERACTIVITY
     Dosage: DOSAGE FORM: UNSPECIFIED
     Route: 030
     Dates: start: 20170110
  7. ZOPICLON [Concomitant]
     Active Substance: ZOPICLONE
     Indication: PRODUCT USED FOR UNKNOWN INDICATION
     Dosage: 7.5 MILLIGRAM DAILY;
     Route: 048
  8. DOMINAL [Concomitant]
     Dosage: 40 MILLIGRAM DAILY;
     Route: 048
     Dates: start: 20161227, end: 20170110
  9. CIATYL?Z ACUPHASE [Interacting]
     Active Substance: ZUCLOPENTHIXOL ACETATE
     Indication: AGITATION
     Dosage: 50 MG, ONCE
     Route: 030
     Dates: start: 20170110, end: 20170110
  10. MIRTAZAPIN [Concomitant]
     Active Substance: MIRTAZAPINE
     Indication: PRODUCT USED FOR UNKNOWN INDICATION
     Dosage: 45 MILLIGRAM DAILY;
     Route: 048

REACTIONS (9)
  - Dyspnoea [Recovered/Resolved]
  - Dyskinesia [Unknown]
  - Tongue spasm [Recovered/Resolved]
  - Oropharyngeal spasm [Recovered/Resolved]
  - Drug administration error [Unknown]
  - Dyskinesia [Recovered/Resolved]
  - Labelled drug-drug interaction medication error [Unknown]
  - Muscle tightness [Recovered/Resolved]
  - Potentiating drug interaction [Unknown]

NARRATIVE: CASE EVENT DATE: 20170111
